FAERS Safety Report 17371108 (Version 3)
Quarter: 2020Q1

REPORT INFORMATION
  Report Type: Spontaneous
  Country: BR (occurrence: BR)
  Receive Date: 20200205
  Receipt Date: 20200213
  Transmission Date: 20200409
  Serious: Yes (Death, Hospitalization, Other)
  Sender: FDA-Public Use
  Company Number: BR-PFIZER INC-2020050021

PATIENT
  Age: 75 Year
  Sex: Female
  Weight: 42 kg

DRUGS (1)
  1. XALKORI [Suspect]
     Active Substance: CRIZOTINIB
     Indication: LUNG NEOPLASM MALIGNANT
     Dosage: 250 MG, 4X/DAY (2 TABLETS OF THE DRUG XALKORI 250MG AT THE LUNCH AND 2 TABLETS AT THE DINNER)
     Dates: start: 201905

REACTIONS (7)
  - Diarrhoea [Not Recovered/Not Resolved]
  - Malaise [Not Recovered/Not Resolved]
  - Prescribed overdose [Unknown]
  - Nosocomial infection [Fatal]
  - Weight decreased [Not Recovered/Not Resolved]
  - Asthenia [Not Recovered/Not Resolved]
  - Vomiting [Not Recovered/Not Resolved]

NARRATIVE: CASE EVENT DATE: 201905
